FAERS Safety Report 21790321 (Version 1)
Quarter: 2022Q4

REPORT INFORMATION
  Report Type: Spontaneous
  Country: KR (occurrence: KR)
  Receive Date: 20221228
  Receipt Date: 20221228
  Transmission Date: 20230113
  Serious: Yes (Other)
  Sender: FDA-Public Use
  Company Number: KR-MYLANLABS-2022M1146950

PATIENT
  Age: 69 Year
  Sex: Male

DRUGS (6)
  1. GABAPENTIN [Suspect]
     Active Substance: GABAPENTIN
     Indication: Spinal osteoarthritis
     Dosage: 1 DOSAGE FORM, QD
     Route: 065
     Dates: start: 20210310
  2. GABAPENTIN [Suspect]
     Active Substance: GABAPENTIN
     Indication: Radiculopathy
  3. CELECOXIB [Suspect]
     Active Substance: CELECOXIB
     Indication: Spinal osteoarthritis
     Dosage: 1 DOSAGE FORM, QD
     Route: 065
     Dates: start: 20210310, end: 20210413
  4. CELECOXIB [Suspect]
     Active Substance: CELECOXIB
     Indication: Radiculopathy
  5. TADALAFIL [Suspect]
     Active Substance: TADALAFIL
     Indication: Hyperplasia
     Dosage: 1 DOSAGE FORM, QD
     Route: 065
     Dates: start: 20210310
  6. TADALAFIL [Suspect]
     Active Substance: TADALAFIL
     Indication: Urinary tract obstruction

REACTIONS (4)
  - Xerophthalmia [Recovering/Resolving]
  - Flatulence [Recovering/Resolving]
  - Pruritus [Recovering/Resolving]
  - Dyspepsia [Recovering/Resolving]

NARRATIVE: CASE EVENT DATE: 20210401
